FAERS Safety Report 7594435-6 (Version None)
Quarter: 2011Q3

REPORT INFORMATION
  Report Type: 
  Country: None (occurrence: None)
  Receive Date: 20110707
  Receipt Date: 20110628
  Transmission Date: 20111222
  Serious: Yes (Other)
  Sender: FDA-Public Use
  Company Number: NL-AMGEN-NLDSP2011024861

PATIENT
  Age: 75 Year
  Sex: Female
  Weight: 56 kg

DRUGS (6)
  1. ALENDRONIC ACID [Concomitant]
     Dosage: 70 MG, WEEKLY
  2. NEXIUM                             /01479303/ [Concomitant]
     Dosage: 20 MG, 1X/DAY
  3. PREDNISOLONE [Concomitant]
     Dosage: 5 MG, 1X/DAY
  4. ENBREL [Suspect]
     Indication: RHEUMATOID ARTHRITIS
     Dosage: UNK
  5. FUCIDIN                            /00065702/ [Concomitant]
  6. FROBEN [Concomitant]
     Dosage: 200 MG, 1X/DAY

REACTIONS (7)
  - CONTUSION [None]
  - LOCALISED INFECTION [None]
  - CYSTITIS [None]
  - IMMUNE SYSTEM DISORDER [None]
  - BRONCHITIS [None]
  - DYSPNOEA [None]
  - INFLUENZA [None]
